FAERS Safety Report 8484110-8 (Version None)
Quarter: 2012Q3

REPORT INFORMATION
  Report Type: 
  Country: None (occurrence: None)
  Receive Date: 20120703
  Receipt Date: 20120625
  Transmission Date: 20120928
  Serious: Yes (Hospitalization)
  Sender: FDA-Public Use
  Company Number: US-CELGENEUS-163-21880-12063543

PATIENT
  Sex: Male

DRUGS (2)
  1. PLASMA [Concomitant]
     Dosage: 4 UNITS
     Route: 041
  2. REVLIMID [Suspect]
     Indication: MULTIPLE MYELOMA
     Dosage: 25 MILLIGRAM
     Route: 048
     Dates: start: 20120501

REACTIONS (1)
  - WHITE BLOOD CELL COUNT INCREASED [None]
